FAERS Safety Report 5657553-5 (Version None)
Quarter: 2008Q1

REPORT INFORMATION
  Report Type: 
  Country: None (occurrence: None)
  Receive Date: 20080310
  Receipt Date: 20080229
  Transmission Date: 20080703
  Serious: Yes (Hospitalization, Other)
  Sender: FDA-Public Use
  Company Number: PHHY2008JP01437

PATIENT
  Age: 53 Year
  Sex: Female

DRUGS (8)
  1. SPANIDIN [Suspect]
  2. SIMULECT [Suspect]
     Indication: RENAL TRANSPLANT
     Dosage: UNK, UNK
     Route: 042
     Dates: start: 20070801
  3. RITUXAN [Suspect]
     Indication: RENAL TRANSPLANT
     Dosage: 100 MG/ DAY
     Route: 042
     Dates: start: 20070806
  4. RITUXAN [Suspect]
     Dosage: 200 MG / DAY
     Route: 042
     Dates: start: 20070810
  5. MEDROL [Suspect]
     Indication: RENAL TRANSPLANT
     Dosage: UNK, UNK
     Route: 048
     Dates: start: 20070801
  6. PROGRAF [Suspect]
     Indication: RENAL TRANSPLANT
     Dates: start: 20070801
  7. CELLCEPT [Suspect]
     Indication: RENAL TRANSPLANT
     Dosage: UNK, UNK
     Route: 048
     Dates: start: 20070801
  8. BREDININ [Concomitant]
     Indication: RENAL TRANSPLANT
     Dosage: UNK, UNK
     Route: 048
     Dates: start: 20070801

REACTIONS (5)
  - BONE MARROW FAILURE [None]
  - LIVER DISORDER [None]
  - RENAL IMPAIRMENT [None]
  - THROMBOCYTOPENIA [None]
  - TRANSPLANT REJECTION [None]
